FAERS Safety Report 4490397-9 (Version None)
Quarter: 2004Q3

REPORT INFORMATION
  Report Type: 
  Country: None (occurrence: None)
  Receive Date: 20040921
  Receipt Date: 20031119
  Transmission Date: 20050211
  Serious: Yes (Hospitalization)
  Sender: FDA-Public Use
  Company Number: 163-20785-03110509

PATIENT
  Age: 59 Year
  Sex: Male

DRUGS (9)
  1. THALOMID [Suspect]
     Indication: MULTIPLE MYELOMA
     Dosage: 100 MG, DAILY, ORAL
     Route: 047
     Dates: start: 20010111, end: 20031023
  2. DEXAMETHASONE [Suspect]
     Indication: MULTIPLE MYELOMA
     Dates: start: 20011203, end: 20020819
  3. DEXAMETHASONE [Suspect]
     Dosage: 40 MG, 4 X PER WEEK, ORAL
     Route: 048
     Dates: start: 20030501, end: 20030520
  4. INTERFERON (INTERFERON) [Suspect]
     Indication: MULTIPLE MYELOMA
     Dosage: 2 MILLION UNITS, 3X TIMES PER WEEK, SUBCUTANEOUS
     Route: 058
     Dates: start: 20030201, end: 20030801
  5. VINCRISTINE [Concomitant]
  6. ADRIAMYCIN PFS [Concomitant]
  7. CYCLOPHOSPHAMIDE [Concomitant]
  8. ETOPOSIDE [Concomitant]
  9. CISPLATIN [Concomitant]

REACTIONS (3)
  - ACID FAST BACILLI INFECTION [None]
  - PLEURAL FIBROSIS [None]
  - PULMONARY GRANULOMA [None]
